FAERS Safety Report 6872892-8 (Version None)
Quarter: 2010Q3

REPORT INFORMATION
  Report Type: 
  Country: None (occurrence: None)
  Receive Date: 20100723
  Receipt Date: 20081029
  Transmission Date: 20110219
  Serious: No
  Sender: FDA-Public Use
  Company Number: US-PFIZER INC-2008093342

PATIENT
  Sex: Female
  Weight: 90.72 kg

DRUGS (8)
  1. CHANTIX [Suspect]
     Indication: SMOKING CESSATION THERAPY
     Route: 048
     Dates: start: 20080101, end: 20080101
  2. PAXIL [Suspect]
     Indication: DEPRESSION
     Dates: start: 20080101, end: 20080101
  3. PROZAC [Suspect]
     Indication: DEPRESSION
     Dates: start: 20080101, end: 20080101
  4. REMERON [Suspect]
     Indication: DEPRESSION
     Dates: start: 20080101, end: 20080101
  5. FENTANYL [Concomitant]
  6. VICODIN [Concomitant]
  7. ASPIRIN [Concomitant]
  8. SIMVASTATIN [Concomitant]

REACTIONS (8)
  - CRYING [None]
  - DEPRESSION [None]
  - HEADACHE [None]
  - INSOMNIA [None]
  - MALAISE [None]
  - MENTAL DISORDER [None]
  - NIGHT SWEATS [None]
  - NIGHTMARE [None]
